FAERS Safety Report 20467675 (Version 2)
Quarter: 2022Q2

REPORT INFORMATION
  Report Type: Report from Study
  Country: US (occurrence: US)
  Receive Date: 20220214
  Receipt Date: 20220425
  Transmission Date: 20220721
  Serious: Yes (Other)
  Sender: FDA-Public Use
  Company Number: US-INSMED, INC.-2021-09897-US

PATIENT
  Sex: Female

DRUGS (7)
  1. ARIKAYCE [Suspect]
     Active Substance: AMIKACIN
     Indication: Mycobacterium avium complex infection
     Dosage: 590 MILLIGRAM, TIW
     Route: 055
     Dates: start: 20211026, end: 2021
  2. ARIKAYCE [Suspect]
     Active Substance: AMIKACIN
     Indication: Aspergillus infection
     Dosage: 590 MILLIGRAM, QOD
     Route: 055
     Dates: start: 2021
  3. ARIKAYCE [Suspect]
     Active Substance: AMIKACIN
     Dosage: 590 MILLIGRAM, TIW
     Route: 055
     Dates: end: 202203
  4. VFEND [Suspect]
     Active Substance: VORICONAZOLE
     Indication: Product used for unknown indication
     Dosage: UNK
     Route: 065
  5. ALBUTEROL [Concomitant]
     Active Substance: ALBUTEROL
     Indication: Product used for unknown indication
     Dosage: 2 PUFFS
     Route: 065
  6. AZITHROMYCIN J [Concomitant]
     Indication: Product used for unknown indication
     Route: 065
  7. PREDNISONE [Concomitant]
     Active Substance: PREDNISONE
     Indication: Product used for unknown indication
     Route: 065

REACTIONS (43)
  - Hearing aid user [Unknown]
  - Bacterial infection [Unknown]
  - Cerebral disorder [Unknown]
  - Pulmonary mass [Unknown]
  - Mycobacterium avium complex infection [Unknown]
  - Dyspnoea [Not Recovered/Not Resolved]
  - Sensation of foreign body [Unknown]
  - Gastrointestinal disorder [Unknown]
  - Fibromyalgia [Unknown]
  - Weight increased [Not Recovered/Not Resolved]
  - Chest pain [Not Recovered/Not Resolved]
  - Oxygen saturation decreased [Unknown]
  - Corrective lens user [Unknown]
  - Blister [Not Recovered/Not Resolved]
  - Immune system disorder [Unknown]
  - Renal cyst [Unknown]
  - Impaired healing [Unknown]
  - Speech disorder [Unknown]
  - Skin disorder [Unknown]
  - Muscle disorder [Unknown]
  - Dysphagia [Unknown]
  - Memory impairment [Not Recovered/Not Resolved]
  - Confusional state [Not Recovered/Not Resolved]
  - Back pain [None]
  - Abdominal discomfort [Not Recovered/Not Resolved]
  - Pain [Not Recovered/Not Resolved]
  - Musculoskeletal discomfort [Unknown]
  - Pain in extremity [Unknown]
  - Decreased appetite [Not Recovered/Not Resolved]
  - Throat irritation [Not Recovered/Not Resolved]
  - Productive cough [Not Recovered/Not Resolved]
  - Myalgia [Unknown]
  - Headache [Not Recovered/Not Resolved]
  - Diarrhoea [Not Recovered/Not Resolved]
  - Cough [Recovered/Resolved]
  - Cough [Not Recovered/Not Resolved]
  - Dizziness [Recovered/Resolved]
  - Fatigue [Not Recovered/Not Resolved]
  - Oropharyngeal discomfort [Unknown]
  - Oropharyngeal pain [Not Recovered/Not Resolved]
  - Dyspnoea [Recovered/Resolved]
  - Off label use [Unknown]
  - Drug ineffective [Unknown]

NARRATIVE: CASE EVENT DATE: 20210101
